FAERS Safety Report 5370460-0 (Version None)
Quarter: 2007Q2

REPORT INFORMATION
  Report Type: 
  Country: None (occurrence: None)
  Receive Date: 20070626
  Receipt Date: 20070321
  Transmission Date: 20071010
  Serious: No
  Sender: FDA-Public Use
  Company Number: US-AMGEN-US216021

PATIENT
  Sex: Female
  Weight: 92.6 kg

DRUGS (15)
  1. ARANESP [Suspect]
     Indication: ANAEMIA
     Route: 058
     Dates: start: 20061226, end: 20070220
  2. WELLBUTRIN [Concomitant]
     Route: 065
  3. LEXAPRO [Concomitant]
     Route: 065
  4. PREVACID [Concomitant]
     Route: 065
  5. PENTASA [Concomitant]
     Route: 065
  6. CRESTOR [Concomitant]
     Route: 065
  7. SYNTHROID [Concomitant]
     Route: 065
  8. GLUCOPHAGE [Concomitant]
     Route: 065
  9. GLUCOTROL [Concomitant]
     Route: 065
  10. OMEGA 3 [Concomitant]
     Route: 065
  11. VITAMIN A [Concomitant]
     Route: 065
  12. VITAMIN CAP [Concomitant]
     Route: 065
  13. CALCIUM CHLORIDE [Concomitant]
     Route: 065
  14. LEVEMIR [Concomitant]
     Route: 065
  15. IRON [Concomitant]
     Route: 065

REACTIONS (3)
  - PRURITUS [None]
  - RASH [None]
  - URTICARIA [None]
